FAERS Safety Report 11185648 (Version 1)
Quarter: 2015Q2

REPORT INFORMATION
  Report Type: Spontaneous
  Country: US (occurrence: US)
  Receive Date: 20150612
  Receipt Date: 20150612
  Transmission Date: 20150821
  Serious: No
  Sender: FDA-Public Use
  Company Number: US-DSJP-DSU-2014-128496

PATIENT
  Sex: Male

DRUGS (4)
  1. NISOLDIPINE. [Concomitant]
     Active Substance: NISOLDIPINE
     Dosage: 7.5 MG, QD
     Dates: end: 201411
  2. NISOLDIPINE. [Concomitant]
     Active Substance: NISOLDIPINE
     Dosage: 7.5 MG, BID
     Dates: start: 201411
  3. NISOLDIPINE. [Concomitant]
     Active Substance: NISOLDIPINE
     Indication: PRODUCT USED FOR UNKNOWN INDICATION
     Dosage: 7.5 MG, BID
  4. BENICAR [Suspect]
     Active Substance: OLMESARTAN MEDOXOMIL
     Indication: PRODUCT USED FOR UNKNOWN INDICATION
     Dosage: 20 MG, BID
     Route: 048
     Dates: end: 20141108

REACTIONS (4)
  - Drug administration error [Recovered/Resolved]
  - Nausea [Recovering/Resolving]
  - Abdominal pain upper [Recovering/Resolving]
  - Abdominal discomfort [Recovering/Resolving]

NARRATIVE: CASE EVENT DATE: 201406
